FAERS Safety Report 13524382 (Version 1)
Quarter: 2017Q2

REPORT INFORMATION
  Report Type: Spontaneous
  Country: CN (occurrence: CN)
  Receive Date: 20170508
  Receipt Date: 20170508
  Transmission Date: 20170830
  Serious: Yes (Other)
  Sender: FDA-Public Use
  Company Number: CN-PFIZER INC-2017201624

PATIENT
  Age: 60 Year
  Sex: Male
  Weight: 69 kg

DRUGS (4)
  1. AVASTIN /00848101/ [Suspect]
     Active Substance: SIMVASTATIN
     Indication: TARGETED CANCER THERAPY
     Dosage: 3 MG, 1X/DAY
     Route: 041
     Dates: start: 20170109, end: 20170109
  2. CAMPTO [Suspect]
     Active Substance: IRINOTECAN
     Indication: RECTAL ADENOCARCINOMA
  3. RALTITREXED [Suspect]
     Active Substance: RALTITREXED
     Indication: CHEMOTHERAPY
     Dosage: 5.4 MG, 1X/DAY
     Route: 041
     Dates: start: 20170109, end: 20170109
  4. CAMPTO [Suspect]
     Active Substance: IRINOTECAN
     Indication: CHEMOTHERAPY
     Dosage: 300 MG, 1X/DAY
     Route: 041
     Dates: start: 20170109, end: 20170109

REACTIONS (1)
  - Bone marrow failure [Recovering/Resolving]

NARRATIVE: CASE EVENT DATE: 20170123
